FAERS Safety Report 5266552-7 (Version None)
Quarter: 2007Q1

REPORT INFORMATION
  Report Type: 
  Country: None (occurrence: None)
  Receive Date: 20070315
  Receipt Date: 20070306
  Transmission Date: 20070707
  Serious: Yes (Other)
  Sender: FDA-Public Use
  Company Number: US-PFIZER INC-2007018000

PATIENT
  Sex: Female
  Weight: 54 kg

DRUGS (2)
  1. LIPITOR [Suspect]
     Indication: BLOOD CHOLESTEROL INCREASED
  2. ENALAPRIL MALEATE [Concomitant]
     Indication: HYPERTENSION

REACTIONS (1)
  - INTRA-CEREBRAL ANEURYSM OPERATION [None]
